FAERS Safety Report 8573285-8 (Version None)
Quarter: 2012Q3

REPORT INFORMATION
  Report Type: 
  Country: None (occurrence: None)
  Receive Date: 20120806
  Receipt Date: 20120725
  Transmission Date: 20120928
  Serious: Yes (Other)
  Sender: FDA-Public Use
  Company Number: GB-FRI-1000037455

PATIENT
  Age: 85 Year
  Sex: Male
  Weight: 76.2 kg

DRUGS (5)
  1. LACTULOSE [Concomitant]
  2. CLINDAMYCIN [Concomitant]
  3. ACETAMINOPHEN [Concomitant]
  4. MEMANTINE HCL [Suspect]
     Indication: DEMENTIA
     Route: 048
     Dates: start: 20120621, end: 20120713
  5. LORAZEPAM [Concomitant]

REACTIONS (9)
  - DYSARTHRIA [None]
  - BRADYCARDIA [None]
  - PETIT MAL EPILEPSY [None]
  - HYPOTONIA [None]
  - COMA SCALE ABNORMAL [None]
  - HYPERTONIA [None]
  - MUSCULAR WEAKNESS [None]
  - VIITH NERVE PARALYSIS [None]
  - SUDDEN ONSET OF SLEEP [None]
